FAERS Safety Report 8153309-2 (Version None)
Quarter: 2012Q1

REPORT INFORMATION
  Report Type: 
  Country: None (occurrence: None)
  Receive Date: 20120221
  Receipt Date: 20120214
  Transmission Date: 20120608
  Serious: Yes (Death)
  Sender: FDA-Public Use
  Company Number: BR-ELI_LILLY_AND_COMPANY-BR201202005084

PATIENT

DRUGS (2)
  1. GEMCITABINE HYDROCHLORIDE [Suspect]
     Indication: BREAST CANCER METASTATIC
     Dosage: 750 MG/M2, UNK
     Route: 042
  2. CISPLATIN [Concomitant]
     Indication: BREAST CANCER METASTATIC
     Dosage: 30 MG/M2, UNK
     Route: 042

REACTIONS (1)
  - FEBRILE NEUTROPENIA [None]
